FAERS Safety Report 12186733 (Version 1)
Quarter: 2016Q1

REPORT INFORMATION
  Report Type: Spontaneous
  Country: CA (occurrence: None)
  Receive Date: 20160316
  Receipt Date: 20160316
  Transmission Date: 20160526
  Serious: Yes (Death, Hospitalization)
  Sender: FDA-Public Use
  Company Number: None

PATIENT
  Age: 66 Year
  Sex: Male
  Weight: 72 kg

DRUGS (3)
  1. MEMANTINE HYDROCHLORIDE [Suspect]
     Active Substance: MEMANTINE HYDROCHLORIDE
     Dates: end: 20160223
  2. LOVENOX [Concomitant]
     Active Substance: ENOXAPARIN SODIUM
  3. CRESTOR [Concomitant]
     Active Substance: ROSUVASTATIN CALCIUM

REACTIONS (5)
  - Lower gastrointestinal haemorrhage [None]
  - Colorectal cancer [None]
  - Thrombocytopenia [None]
  - Superior vena cava syndrome [None]
  - Lung neoplasm malignant [None]

NARRATIVE: CASE EVENT DATE: 20160224
